FAERS Safety Report 24752417 (Version 1)
Quarter: 2024Q4

REPORT INFORMATION
  Report Type: Spontaneous
  Country: CA (occurrence: CA)
  Receive Date: 20241219
  Receipt Date: 20241219
  Transmission Date: 20250115
  Serious: Yes (Life-Threatening, Hospitalization, Disabling, Other)
  Sender: BRISTOL-MYERS SQUIBB COMPANY
  Company Number: CA-BRISTOL-MYERS SQUIBB COMPANY-2024-195648

PATIENT
  Age: 40 Year
  Sex: Female
  Weight: 96 kg

DRUGS (334)
  1. ORENCIA [Suspect]
     Active Substance: ABATACEPT
     Indication: Rheumatoid arthritis
     Route: 058
  2. ORENCIA [Suspect]
     Active Substance: ABATACEPT
  3. ORENCIA [Suspect]
     Active Substance: ABATACEPT
  4. ORENCIA [Suspect]
     Active Substance: ABATACEPT
     Route: 042
  5. ORENCIA [Suspect]
     Active Substance: ABATACEPT
     Route: 042
  6. ORENCIA [Suspect]
     Active Substance: ABATACEPT
     Route: 058
  7. ORENCIA [Suspect]
     Active Substance: ABATACEPT
     Route: 042
  8. ORENCIA [Suspect]
     Active Substance: ABATACEPT
     Route: 042
  9. ORENCIA [Suspect]
     Active Substance: ABATACEPT
  10. ORENCIA [Suspect]
     Active Substance: ABATACEPT
  11. ORENCIA [Suspect]
     Active Substance: ABATACEPT
  12. ORENCIA [Suspect]
     Active Substance: ABATACEPT
     Route: 042
  13. ORENCIA [Suspect]
     Active Substance: ABATACEPT
     Indication: Rheumatoid arthritis
     Route: 042
  14. ORENCIA [Suspect]
     Active Substance: ABATACEPT
     Route: 042
  15. ORENCIA [Suspect]
     Active Substance: ABATACEPT
     Indication: Rheumatoid arthritis
  16. TRIAMCINOLONE ACETONIDE [Suspect]
     Active Substance: TRIAMCINOLONE ACETONIDE
     Indication: Rheumatoid arthritis
  17. TRIAMCINOLONE ACETONIDE [Suspect]
     Active Substance: TRIAMCINOLONE ACETONIDE
     Route: 014
  18. TRIAMCINOLONE ACETONIDE [Suspect]
     Active Substance: TRIAMCINOLONE ACETONIDE
     Route: 058
  19. TRIAMCINOLONE ACETONIDE [Suspect]
     Active Substance: TRIAMCINOLONE ACETONIDE
  20. TRIAMCINOLONE ACETONIDE [Suspect]
     Active Substance: TRIAMCINOLONE ACETONIDE
     Route: 058
  21. ACETAMINOPHEN\CODEINE PHOSPHATE [Concomitant]
     Active Substance: ACETAMINOPHEN\CODEINE PHOSPHATE
     Indication: Product used for unknown indication
  22. ADALIMUMAB [Concomitant]
     Active Substance: ADALIMUMAB
     Indication: Rheumatoid arthritis
     Route: 058
  23. ADALIMUMAB [Concomitant]
     Active Substance: ADALIMUMAB
     Route: 058
  24. AIMOVIG [Concomitant]
     Active Substance: ERENUMAB\ERENUMAB-AOOE
     Indication: Migraine
  25. AIMOVIG [Concomitant]
     Active Substance: ERENUMAB\ERENUMAB-AOOE
  26. ALENDRONATE SODIUM\CHOLECALCIFEROL [Concomitant]
     Active Substance: ALENDRONATE SODIUM\CHOLECALCIFEROL
     Indication: Rheumatoid arthritis
  27. ALENDRONIC ACID [Concomitant]
     Active Substance: ALENDRONIC ACID
     Indication: Rheumatoid arthritis
     Route: 048
  28. ALENDRONIC ACID [Concomitant]
     Active Substance: ALENDRONIC ACID
  29. ALENDRONIC ACID [Concomitant]
     Active Substance: ALENDRONIC ACID
     Route: 016
  30. ALENDRONIC ACID [Concomitant]
     Active Substance: ALENDRONIC ACID
     Route: 005
  31. ALENDRONIC ACID [Concomitant]
     Active Substance: ALENDRONIC ACID
     Route: 048
  32. ALENDRONATE SODIUM\CHOLECALCIFEROL [Concomitant]
     Active Substance: ALENDRONATE SODIUM\CHOLECALCIFEROL
     Indication: Rheumatoid arthritis
  33. PREDNISONE [Concomitant]
     Active Substance: PREDNISONE
     Indication: Rheumatoid arthritis
  34. PREDNISONE [Concomitant]
     Active Substance: PREDNISONE
  35. PREDNISONE [Concomitant]
     Active Substance: PREDNISONE
     Route: 048
  36. PREDNISONE [Concomitant]
     Active Substance: PREDNISONE
     Route: 048
  37. PREDNISONE [Concomitant]
     Active Substance: PREDNISONE
     Route: 048
  38. PREDNISONE [Concomitant]
     Active Substance: PREDNISONE
  39. PREDNISONE [Concomitant]
     Active Substance: PREDNISONE
     Route: 048
  40. PREDNISONE [Concomitant]
     Active Substance: PREDNISONE
     Route: 048
  41. PREDNISONE [Concomitant]
     Active Substance: PREDNISONE
     Route: 048
  42. PREDNISONE [Concomitant]
     Active Substance: PREDNISONE
  43. PREDNISONE [Concomitant]
     Active Substance: PREDNISONE
  44. PREDNISONE [Concomitant]
     Active Substance: PREDNISONE
     Route: 048
  45. PREDNISONE [Concomitant]
     Active Substance: PREDNISONE
     Route: 048
  46. PREDNISONE [Concomitant]
     Active Substance: PREDNISONE
  47. PREDNISONE [Concomitant]
     Active Substance: PREDNISONE
     Route: 048
  48. PREDNISONE [Concomitant]
     Active Substance: PREDNISONE
  49. PREDNISONE [Concomitant]
     Active Substance: PREDNISONE
  50. PREDNISONE [Concomitant]
     Active Substance: PREDNISONE
     Route: 048
  51. PREDNISONE [Concomitant]
     Active Substance: PREDNISONE
     Route: 048
  52. PREDNISONE [Concomitant]
     Active Substance: PREDNISONE
  53. ATOMOXETINE [Concomitant]
     Active Substance: ATOMOXETINE HYDROCHLORIDE
     Indication: Migraine
  54. AZATHIOPRINE SODIUM [Concomitant]
     Active Substance: AZATHIOPRINE SODIUM
     Indication: Product used for unknown indication
  55. CANDESARTAN [Concomitant]
     Active Substance: CANDESARTAN
     Indication: Migraine
     Route: 048
  56. CELEBREX [Concomitant]
     Active Substance: CELECOXIB
     Indication: Product used for unknown indication
  57. CELEBREX [Concomitant]
     Active Substance: CELECOXIB
     Route: 048
  58. CELEBREX [Concomitant]
     Active Substance: CELECOXIB
  59. CELEBREX [Concomitant]
     Active Substance: CELECOXIB
  60. CERTOLIZUMAB PEGOL [Concomitant]
     Active Substance: CERTOLIZUMAB PEGOL
     Indication: Product used for unknown indication
     Route: 005
  61. CERTOLIZUMAB PEGOL [Concomitant]
     Active Substance: CERTOLIZUMAB PEGOL
     Route: 058
  62. CERTOLIZUMAB PEGOL [Concomitant]
     Active Substance: CERTOLIZUMAB PEGOL
  63. CERTOLIZUMAB PEGOL [Concomitant]
     Active Substance: CERTOLIZUMAB PEGOL
     Route: 058
  64. CETIRIZINE HYDROCHLORIDE [Concomitant]
     Active Substance: CETIRIZINE HYDROCHLORIDE
     Indication: Rheumatoid arthritis
  65. CETIRIZINE HYDROCHLORIDE [Concomitant]
     Active Substance: CETIRIZINE HYDROCHLORIDE
     Route: 048
  66. CETIRIZINE HYDROCHLORIDE [Concomitant]
     Active Substance: CETIRIZINE HYDROCHLORIDE
  67. CETIRIZINE HYDROCHLORIDE [Concomitant]
     Active Substance: CETIRIZINE HYDROCHLORIDE
  68. CETIRIZINE HYDROCHLORIDE [Concomitant]
     Active Substance: CETIRIZINE HYDROCHLORIDE
  69. CETIRIZINE HYDROCHLORIDE [Concomitant]
     Active Substance: CETIRIZINE HYDROCHLORIDE
     Route: 048
  70. CETIRIZINE HYDROCHLORIDE [Concomitant]
     Active Substance: CETIRIZINE HYDROCHLORIDE
     Route: 048
  71. CETIRIZINE HYDROCHLORIDE [Concomitant]
     Active Substance: CETIRIZINE HYDROCHLORIDE
  72. CETIRIZINE HYDROCHLORIDE [Concomitant]
     Active Substance: CETIRIZINE HYDROCHLORIDE
  73. CETIRIZINE HYDROCHLORIDE [Concomitant]
     Active Substance: CETIRIZINE HYDROCHLORIDE
     Route: 048
  74. CETIRIZINE HYDROCHLORIDE [Concomitant]
     Active Substance: CETIRIZINE HYDROCHLORIDE
  75. CETIRIZINE HYDROCHLORIDE [Concomitant]
     Active Substance: CETIRIZINE HYDROCHLORIDE
  76. CETIRIZINE HYDROCHLORIDE [Concomitant]
     Active Substance: CETIRIZINE HYDROCHLORIDE
  77. CETIRIZINE HYDROCHLORIDE [Concomitant]
     Active Substance: CETIRIZINE HYDROCHLORIDE
  78. CETIRIZINE HYDROCHLORIDE [Concomitant]
     Active Substance: CETIRIZINE HYDROCHLORIDE
  79. CETIRIZINE HYDROCHLORIDE [Concomitant]
     Active Substance: CETIRIZINE HYDROCHLORIDE
     Route: 016
  80. CETIRIZINE HYDROCHLORIDE [Concomitant]
     Active Substance: CETIRIZINE HYDROCHLORIDE
  81. CETIRIZINE HYDROCHLORIDE [Concomitant]
     Active Substance: CETIRIZINE HYDROCHLORIDE
  82. CETIRIZINE HYDROCHLORIDE [Concomitant]
     Active Substance: CETIRIZINE HYDROCHLORIDE
  83. CETIRIZINE HYDROCHLORIDE [Concomitant]
     Active Substance: CETIRIZINE HYDROCHLORIDE
     Route: 048
  84. CETIRIZINE HYDROCHLORIDE [Concomitant]
     Active Substance: CETIRIZINE HYDROCHLORIDE
  85. CETIRIZINE HYDROCHLORIDE [Concomitant]
     Active Substance: CETIRIZINE HYDROCHLORIDE
  86. CETIRIZINE HYDROCHLORIDE [Concomitant]
     Active Substance: CETIRIZINE HYDROCHLORIDE
     Route: 048
  87. CORTISONE ACETATE [Concomitant]
     Active Substance: CORTISONE ACETATE
     Indication: Rheumatoid arthritis
  88. CORTISONE ACETATE [Concomitant]
     Active Substance: CORTISONE ACETATE
     Route: 048
  89. CORTISONE ACETATE [Concomitant]
     Active Substance: CORTISONE ACETATE
  90. COSENTYX [Concomitant]
     Active Substance: SECUKINUMAB
     Indication: Rheumatoid arthritis
  91. COSENTYX [Concomitant]
     Active Substance: SECUKINUMAB
     Indication: Psoriatic arthropathy
  92. COSENTYX [Concomitant]
     Active Substance: SECUKINUMAB
     Route: 005
  93. DESOGESTREL AND ETHINYL ESTRADIOL [Concomitant]
     Active Substance: DESOGESTREL\ETHINYL ESTRADIOL
     Indication: Product used for unknown indication
  94. DESOXIMETASONE [Concomitant]
     Active Substance: DESOXIMETASONE
     Indication: Rheumatoid arthritis
  95. DESOXIMETASONE [Concomitant]
     Active Substance: DESOXIMETASONE
     Route: 058
  96. DESOXIMETASONE [Concomitant]
     Active Substance: DESOXIMETASONE
     Route: 048
  97. DESOXIMETASONE [Concomitant]
     Active Substance: DESOXIMETASONE
     Route: 048
  98. DESOXIMETASONE [Concomitant]
     Active Substance: DESOXIMETASONE
  99. DESOXIMETASONE [Concomitant]
     Active Substance: DESOXIMETASONE
     Route: 058
  100. DESOXIMETASONE [Concomitant]
     Active Substance: DESOXIMETASONE
  101. DESOXIMETASONE [Concomitant]
     Active Substance: DESOXIMETASONE
     Route: 003
  102. DESOXIMETASONE [Concomitant]
     Active Substance: DESOXIMETASONE
  103. DESOXIMETASONE [Concomitant]
     Active Substance: DESOXIMETASONE
     Route: 058
  104. DESOXIMETASONE [Concomitant]
     Active Substance: DESOXIMETASONE
     Route: 048
  105. DESOXIMETASONE [Concomitant]
     Active Substance: DESOXIMETASONE
     Route: 048
  106. DESOXIMETASONE [Concomitant]
     Active Substance: DESOXIMETASONE
     Route: 048
  107. DESOXIMETASONE [Concomitant]
     Active Substance: DESOXIMETASONE
     Route: 048
  108. DESOXIMETASONE [Concomitant]
     Active Substance: DESOXIMETASONE
  109. DESOXIMETASONE [Concomitant]
     Active Substance: DESOXIMETASONE
     Route: 058
  110. DESOXIMETASONE [Concomitant]
     Active Substance: DESOXIMETASONE
     Route: 048
  111. DESOXIMETASONE [Concomitant]
     Active Substance: DESOXIMETASONE
     Route: 048
  112. DESOXIMETASONE [Concomitant]
     Active Substance: DESOXIMETASONE
     Route: 003
  113. DESOXIMETASONE [Concomitant]
     Active Substance: DESOXIMETASONE
  114. DESOXIMETASONE [Concomitant]
     Active Substance: DESOXIMETASONE
     Route: 058
  115. DESOXIMETASONE [Concomitant]
     Active Substance: DESOXIMETASONE
     Route: 048
  116. DESOXIMETASONE [Concomitant]
     Active Substance: DESOXIMETASONE
     Route: 048
  117. DESOXIMETASONE [Concomitant]
     Active Substance: DESOXIMETASONE
  118. DICLOFENAC [Concomitant]
     Active Substance: DICLOFENAC
     Indication: Product used for unknown indication
  119. DICLOFENAC POTASSIUM [Concomitant]
     Active Substance: DICLOFENAC POTASSIUM
     Indication: Product used for unknown indication
  120. DICLOFENAC SODIUM [Concomitant]
     Active Substance: DICLOFENAC SODIUM
     Indication: Product used for unknown indication
  121. DICLOFENAC SODIUM [Concomitant]
     Active Substance: DICLOFENAC SODIUM
  122. DICLOFENAC SODIUM [Concomitant]
     Active Substance: DICLOFENAC SODIUM
     Route: 058
  123. ENBREL [Concomitant]
     Active Substance: ETANERCEPT
     Indication: Rheumatoid arthritis
     Route: 058
  124. ENBREL [Concomitant]
     Active Substance: ETANERCEPT
     Route: 058
  125. ENBREL [Concomitant]
     Active Substance: ETANERCEPT
  126. ENBREL [Concomitant]
     Active Substance: ETANERCEPT
     Route: 058
  127. ENBREL [Concomitant]
     Active Substance: ETANERCEPT
  128. ENBREL [Concomitant]
     Active Substance: ETANERCEPT
  129. ENBREL [Concomitant]
     Active Substance: ETANERCEPT
     Route: 058
  130. ENBREL [Concomitant]
     Active Substance: ETANERCEPT
     Route: 058
  131. ENBREL [Concomitant]
     Active Substance: ETANERCEPT
     Route: 058
  132. FLUMETHASONE PIVALATE [Concomitant]
     Active Substance: FLUMETHASONE PIVALATE
     Indication: Product used for unknown indication
     Route: 003
  133. FLUMETHASONE PIVALATE [Concomitant]
     Active Substance: FLUMETHASONE PIVALATE
     Route: 003
  134. FOLIC ACID [Concomitant]
     Active Substance: FOLIC ACID
     Indication: Rheumatoid arthritis
     Route: 048
  135. FOLIC ACID [Concomitant]
     Active Substance: FOLIC ACID
     Route: 048
  136. FOLIC ACID [Concomitant]
     Active Substance: FOLIC ACID
  137. FOLIC ACID [Concomitant]
     Active Substance: FOLIC ACID
  138. FOLIC ACID [Concomitant]
     Active Substance: FOLIC ACID
     Route: 048
  139. FOLIC ACID [Concomitant]
     Active Substance: FOLIC ACID
     Route: 048
  140. FOSAMAX [Concomitant]
     Active Substance: ALENDRONATE SODIUM
     Indication: Rheumatoid arthritis
     Route: 058
  141. FOSAMAX [Concomitant]
     Active Substance: ALENDRONATE SODIUM
     Route: 048
  142. FOSAMAX [Concomitant]
     Active Substance: ALENDRONATE SODIUM
     Route: 005
  143. FOSAMAX [Concomitant]
     Active Substance: ALENDRONATE SODIUM
     Route: 016
  144. FOSAMAX [Concomitant]
     Active Substance: ALENDRONATE SODIUM
  145. FOSAMAX [Concomitant]
     Active Substance: ALENDRONATE SODIUM
     Route: 058
  146. FOSAMAX [Concomitant]
     Active Substance: ALENDRONATE SODIUM
     Route: 048
  147. GOLD [Concomitant]
     Active Substance: GOLD
     Indication: Product used for unknown indication
  148. GOLIMUMAB [Concomitant]
     Active Substance: GOLIMUMAB
     Indication: Rheumatoid arthritis
     Route: 058
  149. GOLIMUMAB [Concomitant]
     Active Substance: GOLIMUMAB
     Indication: Prostatic specific antigen
  150. GOLIMUMAB [Concomitant]
     Active Substance: GOLIMUMAB
  151. HUMIRA [Concomitant]
     Active Substance: ADALIMUMAB
     Indication: Rheumatoid arthritis
     Route: 057
  152. HUMIRA [Concomitant]
     Active Substance: ADALIMUMAB
     Route: 058
  153. HUMIRA [Concomitant]
     Active Substance: ADALIMUMAB
  154. HUMIRA [Concomitant]
     Active Substance: ADALIMUMAB
     Route: 058
  155. HUMIRA [Concomitant]
     Active Substance: ADALIMUMAB
     Route: 058
  156. HYDROCORTISONE [Concomitant]
     Active Substance: HYDROCORTISONE
     Indication: Rheumatoid arthritis
  157. HYDROXYCHLOROQUINE SULFATE [Concomitant]
     Active Substance: HYDROXYCHLOROQUINE SULFATE
     Indication: Rheumatoid arthritis
  158. HYDROXYCHLOROQUINE SULFATE [Concomitant]
     Active Substance: HYDROXYCHLOROQUINE SULFATE
     Route: 048
  159. HYDROXYCHLOROQUINE SULFATE [Concomitant]
     Active Substance: HYDROXYCHLOROQUINE SULFATE
     Route: 048
  160. HYDROXYCHLOROQUINE SULFATE [Concomitant]
     Active Substance: HYDROXYCHLOROQUINE SULFATE
  161. HYDROXYCHLOROQUINE SULFATE [Concomitant]
     Active Substance: HYDROXYCHLOROQUINE SULFATE
  162. HYDROXYCHLOROQUINE SULFATE [Concomitant]
     Active Substance: HYDROXYCHLOROQUINE SULFATE
  163. HYDROXYCHLOROQUINE SULFATE [Concomitant]
     Active Substance: HYDROXYCHLOROQUINE SULFATE
  164. HYDROXYCHLOROQUINE SULFATE [Concomitant]
     Active Substance: HYDROXYCHLOROQUINE SULFATE
     Route: 005
  165. HYDROXYCHLOROQUINE SULFATE [Concomitant]
     Active Substance: HYDROXYCHLOROQUINE SULFATE
  166. HYDROXYCHLOROQUINE SULFATE [Concomitant]
     Active Substance: HYDROXYCHLOROQUINE SULFATE
     Route: 048
  167. ISOPROPYL ALCOHOL [Concomitant]
     Active Substance: ISOPROPYL ALCOHOL
     Indication: Product used for unknown indication
  168. ISOPROPYL ALCOHOL [Concomitant]
     Active Substance: ISOPROPYL ALCOHOL
  169. LAMICTAL [Concomitant]
     Active Substance: LAMOTRIGINE
     Indication: Product used for unknown indication
     Route: 048
  170. LAMICTAL [Concomitant]
     Active Substance: LAMOTRIGINE
     Route: 048
  171. LEFLUNOMIDE [Concomitant]
     Active Substance: LEFLUNOMIDE
     Indication: Rheumatoid arthritis
     Route: 048
  172. LEFLUNOMIDE [Concomitant]
     Active Substance: LEFLUNOMIDE
  173. LEFLUNOMIDE [Concomitant]
     Active Substance: LEFLUNOMIDE
  174. LEFLUNOMIDE [Concomitant]
     Active Substance: LEFLUNOMIDE
  175. LEFLUNOMIDE [Concomitant]
     Active Substance: LEFLUNOMIDE
  176. LEFLUNOMIDE [Concomitant]
     Active Substance: LEFLUNOMIDE
     Route: 048
  177. MEGLUMINE [Concomitant]
     Active Substance: MEGLUMINE
     Indication: Product used for unknown indication
     Route: 042
  178. MEGLUMINE [Concomitant]
     Active Substance: MEGLUMINE
     Route: 040
  179. METHOTREXATE [Concomitant]
     Active Substance: METHOTREXATE
     Indication: Rheumatoid arthritis
     Route: 048
  180. METHOTREXATE [Concomitant]
     Active Substance: METHOTREXATE
     Route: 058
  181. METHOTREXATE [Concomitant]
     Active Substance: METHOTREXATE
  182. METHOTREXATE [Concomitant]
     Active Substance: METHOTREXATE
     Route: 058
  183. METHOTREXATE [Concomitant]
     Active Substance: METHOTREXATE
     Route: 048
  184. METHOTREXATE [Concomitant]
     Active Substance: METHOTREXATE
     Route: 058
  185. METHOTREXATE [Concomitant]
     Active Substance: METHOTREXATE
     Route: 048
  186. METHOTREXATE [Concomitant]
     Active Substance: METHOTREXATE
     Route: 048
  187. METHOTREXATE [Concomitant]
     Active Substance: METHOTREXATE
  188. METHOTREXATE [Concomitant]
     Active Substance: METHOTREXATE
     Route: 016
  189. METHOTREXATE [Concomitant]
     Active Substance: METHOTREXATE
     Route: 048
  190. METHOTREXATE [Concomitant]
     Active Substance: METHOTREXATE
     Route: 048
  191. METHOTREXATE [Concomitant]
     Active Substance: METHOTREXATE
     Route: 013
  192. METHOTREXATE [Concomitant]
     Active Substance: METHOTREXATE
  193. METHOTREXATE [Concomitant]
     Active Substance: METHOTREXATE
  194. METHOTREXATE [Concomitant]
     Active Substance: METHOTREXATE
  195. METHOTREXATE [Concomitant]
     Active Substance: METHOTREXATE
     Route: 058
  196. METHOTREXATE [Concomitant]
     Active Substance: METHOTREXATE
     Route: 048
  197. METHOTREXATE [Concomitant]
     Active Substance: METHOTREXATE
     Route: 048
  198. METHOTREXATE [Concomitant]
     Active Substance: METHOTREXATE
     Route: 048
  199. METHOTREXATE [Concomitant]
     Active Substance: METHOTREXATE
     Route: 048
  200. METHOTREXATE [Concomitant]
     Active Substance: METHOTREXATE
     Route: 048
  201. METHOTREXATE [Concomitant]
     Active Substance: METHOTREXATE
     Route: 048
  202. METHOTREXATE [Concomitant]
     Active Substance: METHOTREXATE
  203. METHYLPREDNISOLONE [Concomitant]
     Active Substance: METHYLPREDNISOLONE
     Indication: Rheumatoid arthritis
  204. METHYLPREDNISOLONE [Concomitant]
     Active Substance: METHYLPREDNISOLONE
     Route: 058
  205. METHYLPREDNISOLONE [Concomitant]
     Active Substance: METHYLPREDNISOLONE
     Route: 042
  206. METHYLPREDNISOLONE [Concomitant]
     Active Substance: METHYLPREDNISOLONE
     Route: 042
  207. METHYLPREDNISOLONE [Concomitant]
     Active Substance: METHYLPREDNISOLONE
  208. METHYLPREDNISOLONE [Concomitant]
     Active Substance: METHYLPREDNISOLONE
  209. METHYLPREDNISOLONE [Concomitant]
     Active Substance: METHYLPREDNISOLONE
     Route: 058
  210. METHYLPREDNISOLONE [Concomitant]
     Active Substance: METHYLPREDNISOLONE
     Route: 042
  211. MINOCYCLINE [Concomitant]
     Active Substance: MINOCYCLINE HYDROCHLORIDE
     Indication: Rheumatoid arthritis
  212. MINOCYCLINE [Concomitant]
     Active Substance: MINOCYCLINE HYDROCHLORIDE
  213. MYRBETRIQ [Concomitant]
     Active Substance: MIRABEGRON
     Indication: Product used for unknown indication
  214. MYRBETRIQ [Concomitant]
     Active Substance: MIRABEGRON
  215. MYRBETRIQ [Concomitant]
     Active Substance: MIRABEGRON
  216. MYRBETRIQ [Concomitant]
     Active Substance: MIRABEGRON
  217. NAPROXEN [Concomitant]
     Active Substance: NAPROXEN
     Indication: Product used for unknown indication
  218. NAPROXEN [Concomitant]
     Active Substance: NAPROXEN
  219. NAPROXEN SODIUM [Concomitant]
     Active Substance: NAPROXEN SODIUM
     Indication: Rheumatoid arthritis
  220. OXYCODONE [Concomitant]
     Active Substance: OXYCODONE
     Indication: Product used for unknown indication
  221. PHTHALYLSULFATHIAZOLE [Concomitant]
     Active Substance: PHTHALYLSULFATHIAZOLE
     Indication: Rheumatoid arthritis
  222. PHTHALYLSULFATHIAZOLE [Concomitant]
     Active Substance: PHTHALYLSULFATHIAZOLE
     Route: 048
  223. PHTHALYLSULFATHIAZOLE [Concomitant]
     Active Substance: PHTHALYLSULFATHIAZOLE
     Route: 042
  224. PHTHALYLSULFATHIAZOLE [Concomitant]
     Active Substance: PHTHALYLSULFATHIAZOLE
     Route: 048
  225. PHTHALYLSULFATHIAZOLE [Concomitant]
     Active Substance: PHTHALYLSULFATHIAZOLE
     Route: 058
  226. PHTHALYLSULFATHIAZOLE [Concomitant]
     Active Substance: PHTHALYLSULFATHIAZOLE
     Route: 048
  227. PHTHALYLSULFATHIAZOLE [Concomitant]
     Active Substance: PHTHALYLSULFATHIAZOLE
     Route: 048
  228. PHTHALYLSULFATHIAZOLE [Concomitant]
     Active Substance: PHTHALYLSULFATHIAZOLE
     Route: 042
  229. PHTHALYLSULFATHIAZOLE [Concomitant]
     Active Substance: PHTHALYLSULFATHIAZOLE
     Route: 048
  230. PHTHALYLSULFATHIAZOLE [Concomitant]
     Active Substance: PHTHALYLSULFATHIAZOLE
     Route: 058
  231. PHTHALYLSULFATHIAZOLE [Concomitant]
     Active Substance: PHTHALYLSULFATHIAZOLE
     Route: 048
  232. PHTHALYLSULFATHIAZOLE [Concomitant]
     Active Substance: PHTHALYLSULFATHIAZOLE
  233. PHTHALYLSULFATHIAZOLE [Concomitant]
     Active Substance: PHTHALYLSULFATHIAZOLE
     Route: 042
  234. PHTHALYLSULFATHIAZOLE [Concomitant]
     Active Substance: PHTHALYLSULFATHIAZOLE
     Route: 058
  235. PREDNISONE [Concomitant]
     Active Substance: PREDNISONE
     Indication: Rheumatoid arthritis
     Route: 048
  236. PREDNISONE [Concomitant]
     Active Substance: PREDNISONE
  237. PREDNISONE [Concomitant]
     Active Substance: PREDNISONE
     Route: 048
  238. PREDNISONE [Concomitant]
     Active Substance: PREDNISONE
     Route: 048
  239. PREDNISONE [Concomitant]
     Active Substance: PREDNISONE
     Route: 048
  240. PREDNISONE [Concomitant]
     Active Substance: PREDNISONE
  241. PREDNISONE [Concomitant]
     Active Substance: PREDNISONE
  242. PREDNISONE [Concomitant]
     Active Substance: PREDNISONE
     Route: 048
  243. PREDNISONE [Concomitant]
     Active Substance: PREDNISONE
  244. PREDNISONE [Concomitant]
     Active Substance: PREDNISONE
  245. RANITIDINE [Concomitant]
     Active Substance: RANITIDINE
     Indication: Product used for unknown indication
  246. CETIRIZINE HYDROCHLORIDE\PSEUDOEPHEDRINE HYDROCHLORIDE [Concomitant]
     Active Substance: CETIRIZINE HYDROCHLORIDE\PSEUDOEPHEDRINE HYDROCHLORIDE
     Indication: Rheumatoid arthritis
  247. CETIRIZINE HYDROCHLORIDE\PSEUDOEPHEDRINE HYDROCHLORIDE [Concomitant]
     Active Substance: CETIRIZINE HYDROCHLORIDE\PSEUDOEPHEDRINE HYDROCHLORIDE
  248. CETIRIZINE HYDROCHLORIDE\PSEUDOEPHEDRINE HYDROCHLORIDE [Concomitant]
     Active Substance: CETIRIZINE HYDROCHLORIDE\PSEUDOEPHEDRINE HYDROCHLORIDE
     Route: 042
  249. CETIRIZINE HYDROCHLORIDE\PSEUDOEPHEDRINE HYDROCHLORIDE [Concomitant]
     Active Substance: CETIRIZINE HYDROCHLORIDE\PSEUDOEPHEDRINE HYDROCHLORIDE
  250. CETIRIZINE HYDROCHLORIDE\PSEUDOEPHEDRINE HYDROCHLORIDE [Concomitant]
     Active Substance: CETIRIZINE HYDROCHLORIDE\PSEUDOEPHEDRINE HYDROCHLORIDE
  251. CETIRIZINE HYDROCHLORIDE\PSEUDOEPHEDRINE HYDROCHLORIDE [Concomitant]
     Active Substance: CETIRIZINE HYDROCHLORIDE\PSEUDOEPHEDRINE HYDROCHLORIDE
  252. CETIRIZINE HYDROCHLORIDE\PSEUDOEPHEDRINE HYDROCHLORIDE [Concomitant]
     Active Substance: CETIRIZINE HYDROCHLORIDE\PSEUDOEPHEDRINE HYDROCHLORIDE
  253. REMICADE [Concomitant]
     Active Substance: INFLIXIMAB
     Indication: Rheumatoid arthritis
     Route: 042
  254. REMICADE [Concomitant]
     Active Substance: INFLIXIMAB
     Route: 042
  255. REMICADE [Concomitant]
     Active Substance: INFLIXIMAB
     Route: 058
  256. REMICADE [Concomitant]
     Active Substance: INFLIXIMAB
     Route: 042
  257. REMICADE [Concomitant]
     Active Substance: INFLIXIMAB
     Route: 058
  258. REMICADE [Concomitant]
     Active Substance: INFLIXIMAB
     Route: 042
  259. REMICADE [Concomitant]
     Active Substance: INFLIXIMAB
     Route: 042
  260. REMICADE [Concomitant]
     Active Substance: INFLIXIMAB
  261. REMICADE [Concomitant]
     Active Substance: INFLIXIMAB
     Route: 042
  262. REMICADE [Concomitant]
     Active Substance: INFLIXIMAB
     Route: 042
  263. REMICADE [Concomitant]
     Active Substance: INFLIXIMAB
     Route: 042
  264. REMICADE [Concomitant]
     Active Substance: INFLIXIMAB
     Route: 058
  265. RITUXIMAB [Concomitant]
     Active Substance: RITUXIMAB
     Indication: Rheumatoid arthritis
     Route: 042
  266. RITUXIMAB [Concomitant]
     Active Substance: RITUXIMAB
     Route: 016
  267. RITUXIMAB [Concomitant]
     Active Substance: RITUXIMAB
  268. RITUXIMAB [Concomitant]
     Active Substance: RITUXIMAB
  269. RITUXIMAB [Concomitant]
     Active Substance: RITUXIMAB
     Route: 058
  270. RITUXIMAB [Concomitant]
     Active Substance: RITUXIMAB
  271. RITUXIMAB [Concomitant]
     Active Substance: RITUXIMAB
     Route: 043
  272. RITUXIMAB [Concomitant]
     Active Substance: RITUXIMAB
     Route: 042
  273. GOLD SODIUM THIOMALATE [Concomitant]
     Active Substance: GOLD SODIUM THIOMALATE
     Indication: Rheumatoid arthritis
  274. GOLD SODIUM THIOMALATE [Concomitant]
     Active Substance: GOLD SODIUM THIOMALATE
     Route: 058
  275. GOLD SODIUM THIOMALATE [Concomitant]
     Active Substance: GOLD SODIUM THIOMALATE
     Route: 042
  276. GOLD SODIUM THIOMALATE [Concomitant]
     Active Substance: GOLD SODIUM THIOMALATE
  277. GOLD SODIUM THIOMALATE [Concomitant]
     Active Substance: GOLD SODIUM THIOMALATE
  278. GOLD SODIUM THIOMALATE [Concomitant]
     Active Substance: GOLD SODIUM THIOMALATE
     Route: 058
  279. GOLD SODIUM THIOMALATE [Concomitant]
     Active Substance: GOLD SODIUM THIOMALATE
     Route: 042
  280. GOLD SODIUM THIOMALATE [Concomitant]
     Active Substance: GOLD SODIUM THIOMALATE
     Route: 048
  281. GOLD SODIUM THIOMALATE [Concomitant]
     Active Substance: GOLD SODIUM THIOMALATE
  282. GOLD SODIUM THIOMALATE [Concomitant]
     Active Substance: GOLD SODIUM THIOMALATE
  283. SULFAMETHOXAZOLE\TRIMETHOPRIM [Concomitant]
     Active Substance: SULFAMETHOXAZOLE\TRIMETHOPRIM
     Indication: Product used for unknown indication
  284. SULFASALAZINE [Concomitant]
     Active Substance: SULFASALAZINE
     Indication: Rheumatoid arthritis
  285. SULFASALAZINE [Concomitant]
     Active Substance: SULFASALAZINE
     Route: 048
  286. SULFASALAZINE [Concomitant]
     Active Substance: SULFASALAZINE
     Route: 048
  287. SULFASALAZINE [Concomitant]
     Active Substance: SULFASALAZINE
     Route: 048
  288. SULFASALAZINE [Concomitant]
     Active Substance: SULFASALAZINE
  289. SULFASALAZINE [Concomitant]
     Active Substance: SULFASALAZINE
     Route: 048
  290. SULFASALAZINE [Concomitant]
     Active Substance: SULFASALAZINE
     Route: 058
  291. SULFASALAZINE [Concomitant]
     Active Substance: SULFASALAZINE
  292. SULFASALAZINE [Concomitant]
     Active Substance: SULFASALAZINE
     Route: 048
  293. SULFASALAZINE [Concomitant]
     Active Substance: SULFASALAZINE
     Route: 048
  294. SULFASALAZINE [Concomitant]
     Active Substance: SULFASALAZINE
  295. SULFASALAZINE [Concomitant]
     Active Substance: SULFASALAZINE
     Route: 048
  296. SULFASALAZINE [Concomitant]
     Active Substance: SULFASALAZINE
     Route: 048
  297. SULFASALAZINE [Concomitant]
     Active Substance: SULFASALAZINE
     Route: 048
  298. SULFASALAZINE [Concomitant]
     Active Substance: SULFASALAZINE
     Route: 058
  299. SULFASALAZINE [Concomitant]
     Active Substance: SULFASALAZINE
  300. SULFASALAZINE [Concomitant]
     Active Substance: SULFASALAZINE
     Route: 058
  301. SULFASALAZINE [Concomitant]
     Active Substance: SULFASALAZINE
  302. SULFASALAZINE [Concomitant]
     Active Substance: SULFASALAZINE
     Route: 048
  303. SULFASALAZINE [Concomitant]
     Active Substance: SULFASALAZINE
     Route: 048
  304. SULFASALAZINE [Concomitant]
     Active Substance: SULFASALAZINE
     Route: 048
  305. SULFASALAZINE [Concomitant]
     Active Substance: SULFASALAZINE
     Route: 048
  306. SULFASALAZINE [Concomitant]
     Active Substance: SULFASALAZINE
     Route: 058
  307. SULFASALAZINE [Concomitant]
     Active Substance: SULFASALAZINE
     Route: 048
  308. SULFASALAZINE [Concomitant]
     Active Substance: SULFASALAZINE
  309. SULFASALAZINE [Concomitant]
     Active Substance: SULFASALAZINE
  310. SULFASALAZINE [Concomitant]
     Active Substance: SULFASALAZINE
     Route: 048
  311. SULFASALAZINE [Concomitant]
     Active Substance: SULFASALAZINE
  312. SULFASALAZINE [Concomitant]
     Active Substance: SULFASALAZINE
     Route: 058
  313. SULFASALAZINE [Concomitant]
     Active Substance: SULFASALAZINE
     Route: 058
  314. SULFASALAZINE [Concomitant]
     Active Substance: SULFASALAZINE
     Route: 058
  315. SULFASALAZINE [Concomitant]
     Active Substance: SULFASALAZINE
     Route: 058
  316. SULFASALAZINE [Concomitant]
     Active Substance: SULFASALAZINE
     Route: 048
  317. SULFASALAZINE [Concomitant]
     Active Substance: SULFASALAZINE
     Route: 016
  318. SULFASALAZINE [Concomitant]
     Active Substance: SULFASALAZINE
     Route: 048
  319. SULFASALAZINE [Concomitant]
     Active Substance: SULFASALAZINE
     Route: 048
  320. SULFASALAZINE [Concomitant]
     Active Substance: SULFASALAZINE
  321. SULFASALAZINE [Concomitant]
     Active Substance: SULFASALAZINE
     Route: 058
  322. SULFASALAZINE [Concomitant]
     Active Substance: SULFASALAZINE
     Route: 048
  323. TOFACITINIB [Concomitant]
     Active Substance: TOFACITINIB
     Indication: Rheumatoid arthritis
  324. TOFACITINIB CITRATE [Concomitant]
     Active Substance: TOFACITINIB CITRATE
     Indication: Rheumatoid arthritis
  325. TOFACITINIB CITRATE [Concomitant]
     Active Substance: TOFACITINIB CITRATE
  326. TOFACITINIB CITRATE [Concomitant]
     Active Substance: TOFACITINIB CITRATE
  327. TOFACITINIB CITRATE [Concomitant]
     Active Substance: TOFACITINIB CITRATE
  328. TOFACITINIB CITRATE [Concomitant]
     Active Substance: TOFACITINIB CITRATE
  329. TOFACITINIB CITRATE [Concomitant]
     Active Substance: TOFACITINIB CITRATE
     Route: 048
  330. TOPIRAMATE [Concomitant]
     Active Substance: TOPIRAMATE
     Indication: Migraine
  331. TOPIRAMATE [Concomitant]
     Active Substance: TOPIRAMATE
  332. TOPIRAMATE [Concomitant]
     Active Substance: TOPIRAMATE
  333. TRAMADOL HYDROCHLORIDE [Concomitant]
     Active Substance: TRAMADOL HYDROCHLORIDE
     Indication: Product used for unknown indication
  334. VITAMIN C [Concomitant]
     Active Substance: ASCORBIC ACID
     Indication: Product used for unknown indication

REACTIONS (41)
  - Abdominal discomfort [Unknown]
  - Abdominal distension [Unknown]
  - Alopecia [Unknown]
  - Anti-cyclic citrullinated peptide antibody positive [Unknown]
  - Arthralgia [Unknown]
  - Arthropathy [Unknown]
  - Blood cholesterol increased [Unknown]
  - Bursitis [Unknown]
  - Coeliac disease [Unknown]
  - Condition aggravated [Unknown]
  - Decreased appetite [Unknown]
  - Drug intolerance [Unknown]
  - Drug-induced liver injury [Unknown]
  - Dyspepsia [Unknown]
  - Fatigue [Unknown]
  - Folliculitis [Unknown]
  - Gastrointestinal disorder [Unknown]
  - Gastrooesophageal reflux disease [Unknown]
  - General physical health deterioration [Unknown]
  - Glossodynia [Unknown]
  - Grip strength decreased [Unknown]
  - Hand deformity [Unknown]
  - Headache [Unknown]
  - Hepatic enzyme increased [Unknown]
  - Hypersensitivity [Unknown]
  - Hypertension [Unknown]
  - Hypoaesthesia [Unknown]
  - Inflammation [Unknown]
  - Insomnia [Unknown]
  - Irritable bowel syndrome [Unknown]
  - Joint swelling [Unknown]
  - Malaise [Unknown]
  - Mobility decreased [Unknown]
  - Musculoskeletal stiffness [Unknown]
  - Nail disorder [Unknown]
  - Off label use [Unknown]
  - Product label confusion [Unknown]
  - Adverse event [Unknown]
  - Hospitalisation [Unknown]
  - Prescribed overdose [Unknown]
  - Prescribed underdose [Unknown]
